FAERS Safety Report 4627440-X (Version None)
Quarter: 2005Q2

REPORT INFORMATION
  Report Type: 
  Country: None (occurrence: None)
  Receive Date: 20050405
  Receipt Date: 20050321
  Transmission Date: 20051028
  Serious: Yes (Hospitalization)
  Sender: FDA-Public Use
  Company Number: 2005047466

PATIENT
  Sex: Female

DRUGS (6)
  1. ZOLOFT [Suspect]
     Indication: DEPRESSION
     Dosage: 50 MG (50 MG, 1 IN 1 D), ORAL
     Route: 048
  2. TROSPIUM CHLORIDE (TROSPIUM CHLORIDE) [Concomitant]
  3. FEXOFENADINE HYDROCHLORIDE [Concomitant]
  4. FLUTICASONE PROPIONATE [Concomitant]
  5. ENALAPRIL MALEATE [Concomitant]
  6. CYCLOBENZAPRINE HYDROCHLORIDE [Concomitant]

REACTIONS (1)
  - DRUG SCREEN FALSE POSITIVE [None]
